FAERS Safety Report 25273183 (Version 1)
Quarter: 2025Q2

REPORT INFORMATION
  Report Type: Spontaneous
  Country: US (occurrence: US)
  Receive Date: 20250506
  Receipt Date: 20250506
  Transmission Date: 20250717
  Serious: Yes (Other)
  Sender: SANOFI AVENTIS
  Company Number: US-SANOFI-02503932

PATIENT
  Sex: Female

DRUGS (1)
  1. DUPIXENT [Suspect]
     Active Substance: DUPILUMAB
     Indication: Product used for unknown indication

REACTIONS (5)
  - Bell^s palsy [Unknown]
  - Hypoaesthesia [Unknown]
  - Swelling face [Unknown]
  - Facial paresis [Unknown]
  - Muscular weakness [Unknown]
